FAERS Safety Report 23687175 (Version 5)
Quarter: 2024Q2

REPORT INFORMATION
  Report Type: Spontaneous
  Country: FR (occurrence: FR)
  Receive Date: 20240329
  Receipt Date: 20240530
  Transmission Date: 20240716
  Serious: Yes (Hospitalization, Other)
  Sender: FDA-Public Use
  Company Number: FR-OTSUKA-2024_006745

PATIENT
  Age: 48 Year
  Sex: Female

DRUGS (12)
  1. ABILIFY MAINTENA [Suspect]
     Active Substance: ARIPIPRAZOLE
     Indication: Product used for unknown indication
     Dosage: 800 MG (2 INJECTIONS OF ABILIFY MAINTENA 400 MG AT INITIATION)
     Route: 065
     Dates: start: 202103
  2. ABILIFY MAINTENA [Suspect]
     Active Substance: ARIPIPRAZOLE
     Dosage: 2 INJECTIONS OF ABILIFY MAINTENA
     Route: 065
     Dates: start: 20240228
  3. ABILIFY [Suspect]
     Active Substance: ARIPIPRAZOLE
     Indication: Delirium
     Dosage: UNK (FOR 15 DAYS)
     Route: 048
  4. ABILIFY [Suspect]
     Active Substance: ARIPIPRAZOLE
     Indication: Psychotic disorder
  5. VITAMIN E [Concomitant]
     Active Substance: .ALPHA.-TOCOPHEROL
     Indication: Product used for unknown indication
     Dosage: UNK
     Route: 065
  6. RIVOTRIL [Concomitant]
     Active Substance: CLONAZEPAM
     Indication: Product used for unknown indication
     Dosage: UNK
     Route: 065
     Dates: start: 20240311
  7. TROPATEPINE HYDROCHLORIDE [Concomitant]
     Active Substance: TROPATEPINE HYDROCHLORIDE
     Indication: Product used for unknown indication
     Dosage: UNK
     Route: 065
     Dates: start: 202402, end: 20240311
  8. LOXAPINE HYDROCHLORIDE [Concomitant]
     Active Substance: LOXAPINE HYDROCHLORIDE
     Indication: Product used for unknown indication
     Dosage: 225 GTT, QD
     Route: 065
     Dates: start: 20240304, end: 20240311
  9. SERTRALINE [Concomitant]
     Active Substance: SERTRALINE HYDROCHLORIDE
     Indication: Product used for unknown indication
     Dosage: UNK
     Route: 065
     Dates: start: 202402
  10. OXAZEPAM [Concomitant]
     Active Substance: OXAZEPAM
     Indication: Product used for unknown indication
     Dosage: UNK
     Route: 065
  11. TETRABENAZINE [Concomitant]
     Active Substance: TETRABENAZINE
     Indication: Product used for unknown indication
     Dosage: 1 DF, QD (1 TABLET PER DAY)
     Route: 065
     Dates: start: 20240311
  12. TETRABENAZINE [Concomitant]
     Active Substance: TETRABENAZINE
     Dosage: 2 DF, QD (2 TABLET DAILY)
     Route: 065

REACTIONS (14)
  - Delusional disorder, unspecified type [Recovered/Resolved]
  - Delusional disorder, persecutory type [Recovered/Resolved]
  - Delirium [Recovered/Resolved]
  - Depressed mood [Recovered/Resolved]
  - Tardive dyskinesia [Recovering/Resolving]
  - Conversion disorder [Unknown]
  - Thymus enlargement [Unknown]
  - Psychiatric decompensation [Unknown]
  - Behaviour disorder [Recovered/Resolved]
  - Mood swings [Recovered/Resolved]
  - Psychomotor hyperactivity [Recovered/Resolved]
  - Therapy interrupted [Unknown]
  - Off label use [Unknown]
  - Treatment noncompliance [Unknown]

NARRATIVE: CASE EVENT DATE: 20210301
